FAERS Safety Report 13587475 (Version 2)
Quarter: 2017Q3

REPORT INFORMATION
  Report Type: Report from Study
  Country: BE (occurrence: BE)
  Receive Date: 20170526
  Receipt Date: 20170703
  Transmission Date: 20171127
  Serious: No
  Sender: FDA-Public Use
  Company Number: BE-ALEXION-A201705629

PATIENT
  Age: 71 Year
  Sex: Female

DRUGS (1)
  1. ASFOTASE ALFA [Suspect]
     Active Substance: ASFOTASE ALFA
     Indication: HYPOPHOSPHATASIA
     Dosage: 1 MG/KG, SIX TIMES/WEEK
     Route: 058
     Dates: start: 20150924

REACTIONS (1)
  - Blood alkaline phosphatase increased [Unknown]

NARRATIVE: CASE EVENT DATE: 20170518
